FAERS Safety Report 24180260 (Version 1)
Quarter: 2024Q3

REPORT INFORMATION
  Report Type: Spontaneous
  Country: US (occurrence: US)
  Receive Date: 20240806
  Receipt Date: 20240806
  Transmission Date: 20241016
  Serious: No
  Sender: AMGEN
  Company Number: US-AMGEN-USASP2024154080

PATIENT
  Age: 42 Year
  Sex: Male

DRUGS (1)
  1. PREDNISONE [Suspect]
     Active Substance: PREDNISONE
     Indication: Deafness neurosensory
     Dosage: 60 MILLIGRAM, QD, FOR 10 DAYS
     Route: 065

REACTIONS (2)
  - Human ehrlichiosis [Recovered/Resolved]
  - Off label use [Unknown]
